FAERS Safety Report 12459135 (Version 10)
Quarter: 2021Q3

REPORT INFORMATION
  Report Type: Spontaneous
  Country: GB (occurrence: GB)
  Receive Date: 20160613
  Receipt Date: 20210708
  Transmission Date: 20211014
  Serious: Yes (Hospitalization, Other)
  Sender: FDA-Public Use
  Company Number: GB-AUROBINDO-AUR-APL-2016-07828

PATIENT
  Age: 36 Year
  Sex: Female

DRUGS (18)
  1. RIBAVIRIN CAPSULE [Suspect]
     Active Substance: RIBAVIRIN
     Indication: HEPATITIS C
     Dosage: 600 MG, TWO TIMES A DAY
     Route: 048
     Dates: start: 2012
  2. SOFOSBUVIR [Suspect]
     Active Substance: SOFOSBUVIR
     Indication: HEPATITIS C
     Dosage: 400 MILLIGRAM, DAILY
     Route: 048
     Dates: start: 201408
  3. MINI?PILL [Interacting]
     Active Substance: NORETHINDRONE
     Indication: POLYCYSTIC OVARIES
     Dosage: 75 MICROGRAM, QD (75 DAYS PRIOR TO STARTING THE DAAS)
     Route: 048
  4. SOFOSBUVIR [Suspect]
     Active Substance: SOFOSBUVIR
     Indication: ANTIVIRAL TREATMENT
  5. NORETHINDRONE. [Interacting]
     Active Substance: NORETHINDRONE
     Dosage: 5 MILLIGRAM, ONCE A DAY
     Route: 065
     Dates: start: 201407
  6. NANDROLONE [Suspect]
     Active Substance: NANDROLONE
     Indication: POLYCYSTIC OVARIES
     Dosage: 10 MILLIGRAM, ONCE A DAY
     Route: 065
     Dates: start: 201407
  7. LEVOTHYROXINE. [Concomitant]
     Active Substance: LEVOTHYROXINE
     Indication: PRODUCT USED FOR UNKNOWN INDICATION
     Dosage: 150 MICROGRAM, QD
     Route: 065
  8. DACLATASVIR. [Interacting]
     Active Substance: DACLATASVIR
     Indication: HEPATITIS C
     Dosage: 60 MILLIGRAM, DAILY
     Route: 048
     Dates: start: 201408
  9. NORETHINDRONE. [Interacting]
     Active Substance: NORETHINDRONE
     Dosage: 5 MILLIGRAM, TWO TIMES A DAY
     Route: 065
     Dates: start: 201407
  10. NANDROLONE [Suspect]
     Active Substance: NANDROLONE
     Dosage: 15 MILLIGRAM, ONCE A DAY 15 MG, QD (5 MG, TID (FOR 3 WEEKS EACH MONTH)
     Route: 065
     Dates: start: 2010, end: 201405
  11. PEGYLATED INTERFERON ALPHA NOS [Suspect]
     Active Substance: PEGINTERFERON ALFA-2A OR PEGINTERFERON ALFA-2B
     Indication: CHRONIC HEPATITIS C
     Dosage: UNK
     Route: 065
     Dates: start: 2012
  12. NORETHINDRONE. [Interacting]
     Active Substance: NORETHINDRONE
     Dosage: 15 MILLIGRAM, ONCE A DAY,  5 MG, TID (FOR 3 WEEKS EACH MONTH)
     Route: 065
     Dates: start: 2010, end: 201405
  13. RIBAVIRIN CAPSULE [Interacting]
     Active Substance: RIBAVIRIN
     Indication: ANTIVIRAL TREATMENT
     Dosage: 1200 MILLIGRAM, ONCE A DAY
     Route: 048
     Dates: start: 201408
  14. DACLATASVIR. [Interacting]
     Active Substance: DACLATASVIR
     Indication: ANTIVIRAL TREATMENT
  15. RIGEVIDON [ETHINYLESTRADIOL;NORGESTREL] [Interacting]
     Active Substance: ETHINYL ESTRADIOL\NORGESTREL
     Indication: POLYCYSTIC OVARIES
     Dosage: 1 DOSAGE FORM, ONCE A DAY, (LEVONORGESTREL 150 ?G / ETHINYLESTRADIOL 30 ?G)
     Route: 065
     Dates: start: 20140731
  16. NORETHINDRONE. [Interacting]
     Active Substance: NORETHINDRONE
     Indication: POLYCYSTIC OVARIES
     Dosage: FOR 3 WEEKS EACH MONTH
     Route: 065
     Dates: start: 2010, end: 201405
  17. DESOGESTREL [Interacting]
     Active Substance: DESOGESTREL
     Indication: POLYCYSTIC OVARIES
     Dosage: 75 MICROGRAM, ONCE A DAY
     Route: 048
  18. RIBAVIRIN CAPSULE [Interacting]
     Active Substance: RIBAVIRIN
     Indication: CHRONIC HEPATITIS C
     Dosage: 600 MILLIGRAM, TWO TIMES A DAY
     Route: 048
     Dates: start: 201408

REACTIONS (7)
  - Hepatic failure [Recovering/Resolving]
  - Jaundice [Unknown]
  - Drug-induced liver injury [Not Recovered/Not Resolved]
  - Hepatotoxicity [Recovered/Resolved]
  - Hepatocellular injury [Recovered/Resolved]
  - Cholestasis [Recovered/Resolved]
  - Drug interaction [Unknown]

NARRATIVE: CASE EVENT DATE: 2014
